FAERS Safety Report 10522350 (Version 1)
Quarter: 2014Q4

REPORT INFORMATION
  Report Type: Spontaneous
  Country: NO (occurrence: NO)
  Receive Date: 20141016
  Receipt Date: 20141016
  Transmission Date: 20150528
  Serious: Yes (Life-Threatening, Hospitalization, Disabling)
  Sender: FDA-Public Use
  Company Number: NO-ELI_LILLY_AND_COMPANY-NO201410003580

PATIENT
  Age: 41 Year
  Sex: Male

DRUGS (1)
  1. ZYPREXA [Suspect]
     Active Substance: OLANZAPINE
     Indication: PSYCHOTIC DISORDER
     Dosage: 10 MG, SINGLE
     Route: 048
     Dates: start: 20140826, end: 20140826

REACTIONS (4)
  - Pulmonary embolism [Recovered/Resolved with Sequelae]
  - Cerebrovascular accident [Unknown]
  - Cor pulmonale acute [Recovered/Resolved with Sequelae]
  - Embolism [Recovered/Resolved with Sequelae]

NARRATIVE: CASE EVENT DATE: 20140826
